FAERS Safety Report 5216922-8 (Version None)
Quarter: 2007Q1

REPORT INFORMATION
  Report Type: 
  Country: None (occurrence: None)
  Receive Date: 20070119
  Receipt Date: 20070110
  Transmission Date: 20070707
  Serious: Yes (Other)
  Sender: FDA-Public Use
  Company Number: 2007302745

PATIENT
  Sex: Male

DRUGS (2)
  1. MINOXIDIL [Suspect]
     Dosage: ONE APPLICATION PER DAY (2%) (1 IN 1D), TOPICAL
     Route: 061
     Dates: start: 19970101
  2. MINOXIDIL [Suspect]
     Dosage: ONE APPLICATION PER DAY (5%) (1  IN 1 D), TOPICAL
     Route: 061
     Dates: start: 19970101

REACTIONS (2)
  - ALANINE AMINOTRANSFERASE INCREASED [None]
  - GAMMA-GLUTAMYLTRANSFERASE INCREASED [None]
